FAERS Safety Report 7503723-0 (Version None)
Quarter: 2011Q2

REPORT INFORMATION
  Report Type: 
  Country: None (occurrence: None)
  Receive Date: 20110524
  Receipt Date: 20110524
  Transmission Date: 20111010
  Serious: Yes (Life-Threatening, Hospitalization)
  Sender: FDA-Public Use
  Company Number: None

PATIENT
  Age: 23 Year
  Sex: Male

DRUGS (3)
  1. LORAZEPAM [Concomitant]
  2. DIPHENHYDRAMINE HCL [Concomitant]
  3. HALOPERIDOL LACTATE [Suspect]
     Indication: AGGRESSION
     Dosage: 10 MG STAT IM
     Route: 030
     Dates: start: 20110218, end: 20110218

REACTIONS (8)
  - LOW DENSITY LIPOPROTEIN INCREASED [None]
  - DEPRESSED LEVEL OF CONSCIOUSNESS [None]
  - LOSS OF CONSCIOUSNESS [None]
  - PULMONARY EMBOLISM [None]
  - HIGH DENSITY LIPOPROTEIN DECREASED [None]
  - BODY TEMPERATURE DECREASED [None]
  - DEEP VEIN THROMBOSIS [None]
  - BLOOD PRESSURE DECREASED [None]
